FAERS Safety Report 9234606 (Version 2)
Quarter: 2013Q2

REPORT INFORMATION
  Report Type: Report from Study
  Country: US (occurrence: US)
  Receive Date: 20130416
  Receipt Date: 20130419
  Transmission Date: 20140414
  Serious: No
  Sender: FDA-Public Use
  Company Number: US-VERTEX PHARMACEUTICALS INC.-2013-004840

PATIENT
  Age: 62 Year
  Sex: Male
  Weight: 70 kg

DRUGS (8)
  1. VX-950 (TELAPREVIR) [Suspect]
     Indication: HEPATITIS C
     Dosage: 750 MG, TID
     Route: 048
     Dates: start: 20130404
  2. RIBASPHERE [Suspect]
     Indication: HEPATITIS C
     Dosage: 600 MG AM, 400 MG PM
     Route: 048
     Dates: start: 20130404
  3. PEGASYS [Suspect]
     Indication: HEPATITIS C
     Dosage: 180 ?G, QW
     Route: 058
     Dates: start: 20130404
  4. SOMA [Concomitant]
     Dosage: 1 DF, BID
     Route: 048
  5. NABUMETONE [Concomitant]
     Dosage: 1 DF, BID
     Route: 048
  6. NEXIUM                             /01479302/ [Concomitant]
     Dosage: 1 DF, BID
     Route: 048
  7. MECLIZINE                          /00072801/ [Concomitant]
     Dosage: 1 DF, PRN
     Route: 048
  8. PERCOCET                           /00446701/ [Concomitant]
     Dosage: 1 DF, TID
     Route: 048

REACTIONS (8)
  - Depression [Unknown]
  - Genital rash [Unknown]
  - Nocturia [Unknown]
  - Arthralgia [Unknown]
  - Insomnia [Unknown]
  - Fatigue [Unknown]
  - Rash [Unknown]
  - Pruritus [Unknown]
